FAERS Safety Report 9071581 (Version 1)
Quarter: 2013Q1

REPORT INFORMATION
  Report Type: Spontaneous
  Country: US (occurrence: US)
  Receive Date: 20130206
  Receipt Date: 20130206
  Transmission Date: 20140127
  Serious: No
  Sender: FDA-Public Use
  Company Number: US-ALLERGAN-1213007US

PATIENT
  Sex: Female

DRUGS (6)
  1. RESTASIS? [Suspect]
     Indication: DRY EYE
     Dosage: 2 GTT, BID
     Route: 047
     Dates: end: 20120914
  2. REFRESH PLUS [Suspect]
     Indication: DRY EYE
     Dosage: 4 GTT, Q2HR
     Route: 047
  3. REFRESH OPTIVE [Suspect]
     Indication: DRY EYE
     Dosage: UNK UNK, Q2HR
     Route: 047
     Dates: end: 20120914
  4. HORMONE REPLACEMENT THERAPY [Concomitant]
     Indication: HORMONE REPLACEMENT THERAPY
  5. ASACOL [Concomitant]
     Indication: COLITIS ULCERATIVE
     Route: 048
  6. LOTEMAX [Concomitant]
     Indication: DRY EYE
     Route: 047

REACTIONS (2)
  - Vertigo [Unknown]
  - Dizziness [Not Recovered/Not Resolved]
